FAERS Safety Report 4530726-0 (Version None)
Quarter: 2004Q4

REPORT INFORMATION
  Report Type: 
  Country: None (occurrence: None)
  Receive Date: 20041217
  Receipt Date: 20041209
  Transmission Date: 20050328
  Serious: Yes (Disabling)
  Sender: FDA-Public Use
  Company Number: GB-GLAXOSMITHKLINE-B0360196A

PATIENT
  Age: 48 Year
  Sex: Male

DRUGS (5)
  1. ROPINIROLE [Suspect]
     Indication: PARKINSON'S DISEASE
     Dosage: 19MG PER DAY
     Route: 048
     Dates: start: 19971223
  2. SINEMET [Concomitant]
     Indication: PARKINSON'S DISEASE
     Dosage: 700MG PER DAY
     Route: 048
     Dates: start: 19980101
  3. DOMPERIDONE [Concomitant]
     Indication: NAUSEA
     Dosage: 20MG TWICE PER DAY
     Route: 048
     Dates: start: 19971201
  4. QUININE [Concomitant]
     Route: 048
  5. AMITRIPTYLINE HCL [Concomitant]
     Route: 048

REACTIONS (6)
  - CONGESTIVE CARDIOMYOPATHY [None]
  - DYSPNOEA [None]
  - HYPERTENSION [None]
  - JOINT SWELLING [None]
  - VIRAL INFECTION [None]
  - WEIGHT INCREASED [None]
